FAERS Safety Report 22989399 (Version 4)
Quarter: 2023Q4

REPORT INFORMATION
  Report Type: Report from Study
  Country: US (occurrence: US)
  Receive Date: 20230927
  Receipt Date: 20231211
  Transmission Date: 20240110
  Serious: Yes (Other)
  Sender: FDA-Public Use
  Company Number: US-UCBSA-2023046503

PATIENT
  Sex: Female

DRUGS (2)
  1. CERTOLIZUMAB PEGOL [Suspect]
     Active Substance: CERTOLIZUMAB PEGOL
     Indication: Axial spondyloarthritis
     Dosage: 400 MILLIGRAM, EV 2 WEEKS(QOW) (AT WEEK 0, 2, 4)
     Route: 058
     Dates: start: 20230912
  2. CERTOLIZUMAB PEGOL [Suspect]
     Active Substance: CERTOLIZUMAB PEGOL
     Dosage: 200 MILLIGRAM, EV 2 WEEKS(QOW) (AT WEEK 0, 2, 4)
     Route: 058
     Dates: start: 2023

REACTIONS (7)
  - Loss of consciousness [Recovered/Resolved]
  - Tunnel vision [Unknown]
  - Cold sweat [Unknown]
  - Injection site pain [Unknown]
  - Fatigue [Unknown]
  - Malaise [Unknown]
  - Therapeutic response shortened [Unknown]

NARRATIVE: CASE EVENT DATE: 20230101
